FAERS Safety Report 8198215-2 (Version None)
Quarter: 2012Q1

REPORT INFORMATION
  Report Type: 
  Country: None (occurrence: None)
  Receive Date: 20120309
  Receipt Date: 20111220
  Transmission Date: 20120608
  Serious: No
  Sender: FDA-Public Use
  Company Number: US-AMGEN-USASP2011064478

PATIENT
  Sex: Female
  Weight: 75.283 kg

DRUGS (11)
  1. EXCEDRIN (MIGRAINE) [Concomitant]
  2. FISH OIL [Concomitant]
  3. VITAMIN B-12 [Concomitant]
     Dosage: UNK UNK, QWK
  4. ESTER C [Concomitant]
  5. PROLIA [Suspect]
     Indication: OSTEOPOROSIS POSTMENOPAUSAL
     Dosage: 60 MG, Q6MO
     Route: 030
     Dates: start: 20111201
  6. VITAMIN B-12 [Concomitant]
     Dosage: UNK, 2 TIMES/WK
  7. STOOL SOFTENER [Concomitant]
  8. TRIAMTERENE AND HYDROCHLOROTHIAZIDE [Concomitant]
  9. VITAMIN D [Concomitant]
  10. SELENIUM [Concomitant]
  11. CALCIUM CITRATE [Concomitant]

REACTIONS (7)
  - PAIN IN EXTREMITY [None]
  - DIZZINESS [None]
  - DIARRHOEA [None]
  - NAUSEA [None]
  - MYALGIA [None]
  - MUSCLE SPASMS [None]
  - DYSPNOEA [None]
